FAERS Safety Report 5201928-5 (Version None)
Quarter: 2007Q1

REPORT INFORMATION
  Report Type: 
  Country: None (occurrence: None)
  Receive Date: 20070104
  Receipt Date: 20061220
  Transmission Date: 20070707
  Serious: Yes (Other)
  Sender: FDA-Public Use
  Company Number: 151199ISR

PATIENT
  Age: 57 Year
  Sex: Male

DRUGS (4)
  1. FLUOROURACIL [Suspect]
     Dosage: (500 MG/M2) INTRAVENOUS
     Route: 042
  2. BEVACIZUMAB [Suspect]
     Dosage: 0.3571 MG/KG (5 MG/KG, 1 IN 2 WK)
  3. IRINOTECAN HCL [Suspect]
     Dosage: (125 MG/M2) INTRAVENOUS
     Route: 042
  4. FOLINIC ACID [Suspect]
     Dosage: 20 MG/M2 GIVEN ONCE A WEEK FOR 4 WEEKS EVERY 6 WEEKS. INTRAVENOUS
     Route: 042

REACTIONS (4)
  - ARTERIAL THROMBOSIS [None]
  - ISCHAEMIA [None]
  - NECROSIS [None]
  - TOE AMPUTATION [None]
